FAERS Safety Report 6723810-4 (Version None)
Quarter: 2010Q2

REPORT INFORMATION
  Report Type: 
  Country: None (occurrence: None)
  Receive Date: 20100513
  Receipt Date: 20100218
  Transmission Date: 20101027
  Serious: No
  Sender: FDA-Public Use
  Company Number: A0845971A

PATIENT
  Sex: Female

DRUGS (2)
  1. TREXIMET [Suspect]
     Indication: MIGRAINE
     Dosage: 1TAB AS REQUIRED
     Route: 048
  2. UNKNOWN [Concomitant]

REACTIONS (2)
  - ADVERSE DRUG REACTION [None]
  - CHEST DISCOMFORT [None]
